FAERS Safety Report 12048588 (Version 1)
Quarter: 2016Q1

REPORT INFORMATION
  Report Type: Spontaneous
  Country: MX (occurrence: MX)
  Receive Date: 20160208
  Receipt Date: 20160208
  Transmission Date: 20160526
  Serious: Yes (Other)
  Sender: FDA-Public Use
  Company Number: PHHY2016MX003934

PATIENT
  Age: 70 Year
  Sex: Female

DRUGS (8)
  1. BETAMETHASONE. [Suspect]
     Active Substance: BETAMETHASONE
     Indication: PEMPHIGUS
     Route: 061
  2. PREDNISONE. [Suspect]
     Active Substance: PREDNISONE
     Indication: PEMPHIGUS
     Dosage: 30 MG, QD
     Route: 065
  3. PREDNISONE. [Suspect]
     Active Substance: PREDNISONE
     Dosage: 15 MG, QD
     Route: 065
  4. BUROW^S SOLUTION [Concomitant]
     Indication: PEMPHIGUS
     Route: 061
  5. TETRACYCLINE [Concomitant]
     Active Substance: TETRACYCLINE
     Indication: PEMPHIGUS
     Route: 065
  6. AZATHIOPRINE. [Concomitant]
     Active Substance: AZATHIOPRINE
     Indication: PEMPHIGUS
     Route: 065
  7. VIOFORM [Concomitant]
     Indication: PEMPHIGUS
     Route: 061
  8. ANTIHISTAMINES [Concomitant]
     Active Substance: ANTIHISTAMINES NOS
     Indication: PEMPHIGUS
     Route: 065

REACTIONS (4)
  - Gastrointestinal disorder [Recovering/Resolving]
  - Drug ineffective [Unknown]
  - Thyroid function test abnormal [Recovering/Resolving]
  - Osteoporosis [Recovering/Resolving]
